FAERS Safety Report 9227650 (Version 1)
Quarter: 2013Q2

REPORT INFORMATION
  Report Type: Spontaneous
  Country: PL (occurrence: PL)
  Receive Date: 20130412
  Receipt Date: 20130412
  Transmission Date: 20140414
  Serious: Yes (Hospitalization)
  Sender: FDA-Public Use
  Company Number: PL-BRISTOL-MYERS SQUIBB COMPANY-18752568

PATIENT
  Age: 37 Year
  Sex: Male

DRUGS (2)
  1. ATAZANAVIR [Suspect]
     Indication: HIV INFECTION
  2. TRUVADA [Suspect]
     Indication: HIV INFECTION

REACTIONS (2)
  - Upper respiratory tract infection [Unknown]
  - Headache [Unknown]
